FAERS Safety Report 11096764 (Version 8)
Quarter: 2015Q4

REPORT INFORMATION
  Report Type: Report from Study
  Country: US (occurrence: US)
  Receive Date: 20150507
  Receipt Date: 20151015
  Transmission Date: 20160304
  Serious: Yes (Other)
  Sender: FDA-Public Use
  Company Number: US-SA-2015SA059851

PATIENT
  Age: 49 Year
  Sex: Female

DRUGS (1)
  1. AUBAGIO [Suspect]
     Active Substance: TERIFLUNOMIDE
     Indication: MULTIPLE SCLEROSIS
     Route: 048
     Dates: start: 20150402

REACTIONS (17)
  - Chest pain [Unknown]
  - Malaise [Unknown]
  - Feeling drunk [Unknown]
  - Memory impairment [Not Recovered/Not Resolved]
  - Hepatic steatosis [Unknown]
  - Affective disorder [Unknown]
  - Alopecia [Not Recovered/Not Resolved]
  - Confusional state [Unknown]
  - Sleep disorder [Unknown]
  - Abdominal discomfort [Not Recovered/Not Resolved]
  - Lower respiratory tract infection [Unknown]
  - Cough [Unknown]
  - Stress [Unknown]
  - Drug ineffective [Unknown]
  - Abasia [Not Recovered/Not Resolved]
  - Bedridden [Unknown]
  - Dizziness [Not Recovered/Not Resolved]

NARRATIVE: CASE EVENT DATE: 2015
